FAERS Safety Report 7275752-6 (Version None)
Quarter: 2011Q1

REPORT INFORMATION
  Report Type: 
  Country: None (occurrence: None)
  Receive Date: 20110204
  Receipt Date: 20110131
  Transmission Date: 20110831
  Serious: Yes (Other)
  Sender: FDA-Public Use
  Company Number: FR-MERCK-1102FRA00009

PATIENT
  Age: 71 Year
  Sex: Female

DRUGS (8)
  1. GLICLAZIDE [Concomitant]
     Route: 048
  2. TRIMETAZIDINE HYDROCHLORIDE [Concomitant]
     Route: 048
  3. INSULIN [Concomitant]
     Route: 058
     Dates: start: 20110128, end: 20110101
  4. JANUVIA [Suspect]
     Indication: TYPE 2 DIABETES MELLITUS
     Route: 048
     Dates: start: 20110130, end: 20110131
  5. PERINDOPRIL [Concomitant]
     Indication: HYPERTENSION
     Route: 048
     Dates: start: 20060101
  6. NAFRONYL OXALATE [Concomitant]
     Route: 048
  7. METFORMIN [Concomitant]
     Route: 048
  8. LACTITOL [Concomitant]
     Route: 065

REACTIONS (2)
  - VERTIGO [None]
  - HYPERTENSIVE CRISIS [None]
